FAERS Safety Report 17959406 (Version 1)
Quarter: 2020Q2

REPORT INFORMATION
  Report Type: Spontaneous
  Country: FR (occurrence: FR)
  Receive Date: 20200630
  Receipt Date: 20200630
  Transmission Date: 20200714
  Serious: Yes (Other)
  Sender: FDA-Public Use
  Company Number: FR-ALVOGEN-2020-ALVOGEN-108808

PATIENT
  Age: 78 Year
  Sex: Male

DRUGS (3)
  1. ATENOLOL. [Suspect]
     Active Substance: ATENOLOL
     Indication: PRODUCT USED FOR UNKNOWN INDICATION
     Route: 065
  2. KARDEGIC [Suspect]
     Active Substance: ASPIRIN DL-LYSINE
     Indication: PRODUCT USED FOR UNKNOWN INDICATION
     Route: 065
  3. MONO-TILDIEM [Suspect]
     Active Substance: DILTIAZEM HYDROCHLORIDE
     Indication: PRODUCT USED FOR UNKNOWN INDICATION
     Route: 048

REACTIONS (7)
  - Fatigue [Unknown]
  - Unevaluable event [Unknown]
  - Seizure [Unknown]
  - Hypotension [Unknown]
  - Stent placement [Unknown]
  - Gait disturbance [Unknown]
  - Contraindicated product administered [Unknown]
